FAERS Safety Report 5374850-1 (Version None)
Quarter: 2007Q2

REPORT INFORMATION
  Report Type: 
  Country: None (occurrence: None)
  Receive Date: 20070629
  Receipt Date: 20070627
  Transmission Date: 20071010
  Serious: Yes (Other)
  Sender: FDA-Public Use
  Company Number: B0475498A

PATIENT
  Age: 9 Year
  Sex: Female

DRUGS (2)
  1. VALTREX [Suspect]
     Indication: VARICELLA
     Dosage: 3.75MG TWICE PER DAY
     Route: 048
     Dates: start: 20070611, end: 20070612
  2. POLARAMINE [Concomitant]
     Route: 048

REACTIONS (2)
  - LOSS OF CONSCIOUSNESS [None]
  - PALLOR [None]
